FAERS Safety Report 7388478-5 (Version None)
Quarter: 2011Q2

REPORT INFORMATION
  Report Type: 
  Country: None (occurrence: None)
  Receive Date: 20110401
  Receipt Date: 20110318
  Transmission Date: 20111010
  Serious: No
  Sender: FDA-Public Use
  Company Number: US-JNJFOC-20110308816

PATIENT
  Sex: Female

DRUGS (16)
  1. DURAGESIC-50 [Suspect]
     Route: 062
  2. DURAGESIC-50 [Suspect]
     Route: 062
  3. FENTANYL-100 [Suspect]
     Indication: MUSCULOSKELETAL PAIN
     Route: 062
  4. DURAGESIC-50 [Suspect]
     Indication: PAIN IN EXTREMITY
     Route: 062
  5. FENTANYL-100 [Suspect]
     Route: 062
  6. FENTANYL-100 [Suspect]
     Route: 062
  7. DURAGESIC-50 [Suspect]
     Indication: ARTHRALGIA
     Route: 062
  8. DURAGESIC-50 [Suspect]
     Route: 062
  9. FENTANYL-100 [Suspect]
     Indication: PAIN IN EXTREMITY
     Route: 062
  10. FENTANYL-100 [Suspect]
     Indication: ARTHRALGIA
     Route: 062
  11. DURAGESIC-50 [Suspect]
     Route: 062
  12. FENTANYL-100 [Suspect]
     Route: 062
  13. DURAGESIC-50 [Suspect]
     Route: 062
  14. DURAGESIC-50 [Suspect]
     Route: 062
  15. DURAGESIC-50 [Suspect]
     Indication: MUSCULOSKELETAL PAIN
     Route: 062
  16. VICODIN [Concomitant]
     Indication: BREAKTHROUGH PAIN
     Dosage: 3-4 TIMES AS NEEDED
     Route: 048

REACTIONS (4)
  - DRUG ADMINISTERED AT INAPPROPRIATE SITE [None]
  - DRUG EFFECT DECREASED [None]
  - WRONG TECHNIQUE IN DRUG USAGE PROCESS [None]
  - PRODUCT ADHESION ISSUE [None]
